FAERS Safety Report 20297842 (Version 1)
Quarter: 2022Q1

REPORT INFORMATION
  Report Type: Spontaneous
  Country: PT (occurrence: PT)
  Receive Date: 20220105
  Receipt Date: 20220105
  Transmission Date: 20220424
  Serious: Yes (Other)
  Sender: FDA-Public Use
  Company Number: None

PATIENT
  Sex: Male

DRUGS (6)
  1. TRAMADOL [Suspect]
     Active Substance: TRAMADOL
     Indication: Product used for unknown indication
     Route: 065
     Dates: start: 20190608, end: 20190608
  2. REMIFENTANIL [Suspect]
     Active Substance: REMIFENTANIL
     Indication: Anaesthesia
     Dosage: POWDER FOR CONCENTRATE FOR SOLUTION FOR INJECTION OR FOR INFUSION
     Route: 042
     Dates: start: 20190608, end: 20190608
  3. PROPOFOL [Suspect]
     Active Substance: PROPOFOL
     Indication: Anaesthesia
     Route: 042
     Dates: start: 20190608, end: 20190608
  4. BRIDION [Suspect]
     Active Substance: SUGAMMADEX
     Indication: Product used for unknown indication
     Route: 042
     Dates: start: 20190608, end: 20190608
  5. SEVOFLURANE [Suspect]
     Active Substance: SEVOFLURANE
     Indication: Anaesthesia
     Dosage: LIQUID FOR INHALATION BY VAPORIZATION
     Route: 055
     Dates: start: 20190608, end: 20190608
  6. ROCURONIUM BROMIDE [Suspect]
     Active Substance: ROCURONIUM BROMIDE
     Indication: Product used for unknown indication
     Route: 042
     Dates: start: 20190608, end: 20190608

REACTIONS (2)
  - Pruritus [Recovered/Resolved]
  - Oedema [Recovered/Resolved]

NARRATIVE: CASE EVENT DATE: 20190608
